FAERS Safety Report 8790855 (Version 1)
Quarter: 2012Q4

REPORT INFORMATION
  Report Type: Spontaneous
  Country: US (occurrence: None)
  Receive Date: 20120913
  Receipt Date: 20120913
  Transmission Date: 20130627
  Serious: Yes (Disabling)
  Sender: FDA-Public Use
  Company Number: None

PATIENT
  Age: 43 Year
  Sex: Male
  Weight: 79.38 kg

DRUGS (1)
  1. CIPROFLOXACIN [Suspect]
     Indication: TRAVELLER^S DIARRHEA
     Dosage: 500 mg 2x po
     Route: 048
     Dates: start: 20120504, end: 20120505

REACTIONS (1)
  - Tendon rupture [None]
